FAERS Safety Report 20020673 (Version 1)
Quarter: 2021Q4

REPORT INFORMATION
  Report Type: Spontaneous
  Country: IN (occurrence: IN)
  Receive Date: 20211101
  Receipt Date: 20211101
  Transmission Date: 20220303
  Serious: Yes (Life-Threatening, Other)
  Sender: FDA-Public Use
  Company Number: IN-BEXIMCO-2021BEX00052

PATIENT
  Age: 20 Year
  Sex: Male

DRUGS (2)
  1. CYPROHEPTADINE HYDROCHLORIDE [Suspect]
     Active Substance: CYPROHEPTADINE HYDROCHLORIDE
     Indication: Drug therapy
     Dosage: 8 MG IN TWO DIVIDED DOSES
     Route: 065
  2. DEXAMETHASONE [Suspect]
     Active Substance: DEXAMETHASONE
     Indication: Drug therapy
     Dosage: 0.5 MG, 2X/DAY
     Route: 065

REACTIONS (2)
  - Suicide attempt [Recovered/Resolved]
  - Obsessive-compulsive symptom [Recovered/Resolved]
